FAERS Safety Report 5259885-1 (Version None)
Quarter: 2007Q1

REPORT INFORMATION
  Report Type: 
  Country: None (occurrence: None)
  Receive Date: 20061208
  Receipt Date: 20060615
  Transmission Date: 20070707
  Serious: Yes (Other)
  Sender: FDA-Public Use
  Company Number: USA-2006-0024462

PATIENT
  Age: 27 Year
  Sex: Male

DRUGS (4)
  1. OXYCONTIN [Suspect]
     Indication: PAIN
     Dates: start: 19990101
  2. HEROIN (DIAMORPHINE) [Suspect]
     Indication: DRUG ABUSER
  3. ROXICODONE [Concomitant]
  4. FENTANYL [Concomitant]

REACTIONS (5)
  - COELIAC DISEASE [None]
  - DRUG DEPENDENCE [None]
  - DRUG TOLERANCE [None]
  - PAIN [None]
  - SUBSTANCE ABUSE [None]
